FAERS Safety Report 7831191-8 (Version None)
Quarter: 2011Q4

REPORT INFORMATION
  Report Type: 
  Country: None (occurrence: None)
  Receive Date: 20111021
  Receipt Date: 20111001
  Transmission Date: 20120403
  Serious: Yes (Life-Threatening, Other)
  Sender: FDA-Public Use
  Company Number: PL-ROCHE-1001553

PATIENT
  Age: 36 Year
  Sex: Female

DRUGS (5)
  1. FOLIC ACID [Concomitant]
     Indication: HEPATITIS C
     Dates: start: 20100921, end: 20101210
  2. RIBAVIRIN [Suspect]
     Indication: HEPATITIS C
     Route: 048
     Dates: start: 20100921, end: 20101210
  3. PEG-INTERFERON ALFA 2A [Suspect]
     Indication: HEPATITIS C
     Route: 058
     Dates: start: 20100921, end: 20101210
  4. VITAMIN E [Concomitant]
     Indication: HEPATITIS C
     Dosage: 400
     Route: 048
     Dates: start: 20100921, end: 20101210
  5. ASCORBIC ACID [Concomitant]
     Indication: HEPATITIS C
     Route: 048
     Dates: start: 20100921, end: 20101210

REACTIONS (3)
  - THROMBOCYTOPENIA [None]
  - NEUTROPENIA [None]
  - ANAEMIA [None]
